FAERS Safety Report 6824193-1 (Version None)
Quarter: 2010Q3

REPORT INFORMATION
  Report Type: 
  Country: None (occurrence: None)
  Receive Date: 20100708
  Receipt Date: 20061011
  Transmission Date: 20110219
  Serious: No
  Sender: FDA-Public Use
  Company Number: US-PFIZER INC-2006126451

PATIENT
  Sex: Female
  Weight: 68.04 kg

DRUGS (2)
  1. CHANTIX [Suspect]
     Indication: EX-TOBACCO USER
     Dates: start: 20061006
  2. ZETIA [Concomitant]

REACTIONS (1)
  - DYSGEUSIA [None]
